FAERS Safety Report 7366316-4 (Version None)
Quarter: 2011Q1

REPORT INFORMATION
  Report Type: 
  Country: None (occurrence: None)
  Receive Date: 20110317
  Receipt Date: 20110317
  Transmission Date: 20110831
  Serious: Yes (Hospitalization)
  Sender: FDA-Public Use
  Company Number: None

PATIENT
  Sex: Male
  Weight: 80 kg

DRUGS (1)
  1. INTRON A [Suspect]
     Dosage: 768 MILLION IU

REACTIONS (2)
  - EJECTION FRACTION DECREASED [None]
  - CORONARY ARTERY DISEASE [None]
